FAERS Safety Report 14515923 (Version 1)
Quarter: 2018Q1

REPORT INFORMATION
  Report Type: Report from Study
  Country: US (occurrence: US)
  Receive Date: 20180211
  Receipt Date: 20180211
  Transmission Date: 20180509
  Serious: No
  Sender: FDA-Public Use
  Company Number: US-PUMA BIOTECHNOLOGY, LTD.-2017US016762

PATIENT

DRUGS (2)
  1. NERLYNX [Suspect]
     Active Substance: NERATINIB
     Indication: BREAST CANCER FEMALE
     Dosage: 240 MG, QPM
     Route: 048
     Dates: start: 20171115
  2. LOPERAMIDE [Suspect]
     Active Substance: LOPERAMIDE
     Indication: PRODUCT USED FOR UNKNOWN INDICATION

REACTIONS (4)
  - Drug dose omission [Unknown]
  - Constipation [Unknown]
  - Dyspepsia [Unknown]
  - Diarrhoea [Unknown]
